FAERS Safety Report 25265127 (Version 1)
Quarter: 2025Q2

REPORT INFORMATION
  Report Type: Spontaneous
  Country: US (occurrence: US)
  Receive Date: 20250502
  Receipt Date: 20250502
  Transmission Date: 20250716
  Serious: Yes (Other)
  Sender: BIOMARIN
  Company Number: US-BIOMARINAP-US-2025-165599

PATIENT

DRUGS (1)
  1. JAVYGTOR [Suspect]
     Active Substance: SAPROPTERIN DIHYDROCHLORIDE
     Indication: Foetal exposure during pregnancy
     Dosage: 1300 MILLIGRAM, QD
     Route: 064
     Dates: start: 20240625

REACTIONS (1)
  - Foetal growth restriction [Unknown]
